FAERS Safety Report 8459716-2 (Version None)
Quarter: 2012Q2

REPORT INFORMATION
  Report Type: 
  Country: None (occurrence: None)
  Receive Date: 20120622
  Receipt Date: 20120613
  Transmission Date: 20120825
  Serious: Yes (Other)
  Sender: FDA-Public Use
  Company Number: US-JNJFOC-20120607003

PATIENT
  Sex: Female
  Weight: 113.85 kg

DRUGS (18)
  1. TOVIAZ [Concomitant]
     Indication: AUTOMATIC BLADDER
     Route: 048
     Dates: start: 20120401
  2. METFORMIN HYDROCHLORIDE [Concomitant]
     Indication: DIABETES MELLITUS
     Route: 048
     Dates: start: 20110101
  3. PANTOPRAZOLE SODIUM [Concomitant]
     Indication: GASTRIC DISORDER
     Route: 048
     Dates: start: 20120101
  4. SERTRALINE HYDROCHLORIDE [Concomitant]
     Indication: DEPRESSION
     Route: 048
     Dates: start: 20080101
  5. PRAVASTATIN SODIUM [Concomitant]
     Indication: BLOOD CHOLESTEROL
     Route: 065
  6. FLUOCINONIDE [Concomitant]
     Indication: PSORIASIS
     Route: 061
     Dates: start: 20050101
  7. REMICADE [Suspect]
     Indication: PSORIATIC ARTHROPATHY
     Route: 042
     Dates: start: 20111205
  8. ESTRADIOL [Concomitant]
     Indication: HORMONE REPLACEMENT THERAPY
     Route: 048
     Dates: start: 20120101
  9. VERAPAMIL [Concomitant]
     Indication: MIGRAINE
     Route: 048
  10. GABAPENTIN [Concomitant]
     Indication: NEUROPATHY PERIPHERAL
     Route: 048
     Dates: start: 20110101
  11. LEVSIN PB [Concomitant]
     Indication: GASTRITIS
     Route: 048
  12. MAXALT [Concomitant]
     Indication: MIGRAINE
     Route: 048
     Dates: start: 20050101
  13. TRIAMTERENE AND HYDROCHLOROTHIAZIDE [Concomitant]
     Indication: BLOOD PRESSURE
     Dosage: DOSE: 37.5-25 MG
     Route: 048
  14. DICLOFENAC SODIUM [Concomitant]
     Indication: ARTHRITIS
     Route: 048
     Dates: start: 20110101
  15. JANUVIA [Concomitant]
     Indication: DIABETES MELLITUS
     Route: 048
  16. HYDROCODONE [Concomitant]
     Indication: PAIN
     Dosage: 10MG-650 MG
     Route: 048
     Dates: start: 20090101
  17. LEVOTHYROXINE [Concomitant]
     Indication: THYROID DISORDER
     Route: 048
     Dates: start: 19640101
  18. DIVALPROEX SODIUM [Concomitant]
     Indication: MIGRAINE
     Route: 048

REACTIONS (5)
  - BASAL CELL CARCINOMA [None]
  - WEIGHT DECREASED [None]
  - BLOOD GLUCOSE INCREASED [None]
  - ARTHRALGIA [None]
  - BLOOD CHOLESTEROL INCREASED [None]
